FAERS Safety Report 9767275 (Version 1)
Quarter: 2013Q4

REPORT INFORMATION
  Report Type: Spontaneous
  Country: US (occurrence: US)
  Receive Date: 20131217
  Receipt Date: 20131217
  Transmission Date: 20140711
  Serious: Yes (Other)
  Sender: FDA-Public Use
  Company Number: US-JNJFOC-20131205474

PATIENT
  Sex: Female
  Weight: 63.05 kg

DRUGS (5)
  1. XARELTO [Suspect]
     Indication: CEREBROVASCULAR ACCIDENT PROPHYLAXIS
     Route: 048
     Dates: start: 2012, end: 2013
  2. XARELTO [Suspect]
     Indication: CEREBROVASCULAR ACCIDENT PROPHYLAXIS
     Route: 048
     Dates: start: 2013, end: 201312
  3. XARELTO [Suspect]
     Indication: ATRIAL FIBRILLATION
     Route: 048
     Dates: start: 2013, end: 201312
  4. XARELTO [Suspect]
     Indication: ATRIAL FIBRILLATION
     Route: 048
     Dates: start: 2012, end: 2013
  5. BABY ASPIRIN [Suspect]
     Indication: CARDIAC DISORDER
     Route: 048
     Dates: start: 1995

REACTIONS (9)
  - Blood urine present [Not Recovered/Not Resolved]
  - Haematochezia [Not Recovered/Not Resolved]
  - Nephrolithiasis [Recovered/Resolved]
  - Wrong technique in drug usage process [Unknown]
  - Dyspnoea exertional [Not Recovered/Not Resolved]
  - Fatigue [Not Recovered/Not Resolved]
  - Visual impairment [Not Recovered/Not Resolved]
  - Pain [Not Recovered/Not Resolved]
  - Incorrect dose administered [Unknown]
